FAERS Safety Report 6303459-8 (Version None)
Quarter: 2009Q3

REPORT INFORMATION
  Report Type: 
  Country: None (occurrence: None)
  Receive Date: 20090810
  Receipt Date: 20090728
  Transmission Date: 20100115
  Serious: Yes (Other)
  Sender: FDA-Public Use
  Company Number: PHEH2009US08308

PATIENT

DRUGS (1)
  1. CLOZARIL [Suspect]
     Dosage: UNK, UNK

REACTIONS (1)
  - NON-HODGKIN'S LYMPHOMA [None]
